FAERS Safety Report 17189474 (Version 1)
Quarter: 2019Q4

REPORT INFORMATION
  Report Type: Spontaneous
  Country: CA (occurrence: CA)
  Receive Date: 20191223
  Receipt Date: 20191223
  Transmission Date: 20200122
  Serious: Yes (Other)
  Sender: FDA-Public Use
  Company Number: CA-TEVA-2019-CA-1154994

PATIENT
  Age: 67 Year
  Sex: Female

DRUGS (6)
  1. HYDROXYCHLOROQUINE [Concomitant]
     Active Substance: HYDROXYCHLOROQUINE
  2. METHOTREXATE. [Suspect]
     Active Substance: METHOTREXATE
     Indication: PRODUCT USED FOR UNKNOWN INDICATION
     Route: 048
  3. DICLOFENAC SODIUM/MISOPROSTOL TABLETS [Suspect]
     Active Substance: DICLOFENAC SODIUM\MISOPROSTOL
     Indication: PRODUCT USED FOR UNKNOWN INDICATION
     Dosage: 1 DOSAGE FORMS DAILY;
     Route: 065
  4. TYLENOL 8 HR ARTHRITIS PAIN [Concomitant]
     Active Substance: ACETAMINOPHEN
  5. FOLIC ACID. [Concomitant]
     Active Substance: FOLIC ACID
  6. PROLIA [Concomitant]
     Active Substance: DENOSUMAB
     Route: 058

REACTIONS (5)
  - Cough [Unknown]
  - Mycobacterium tuberculosis complex test positive [Unknown]
  - Oropharyngeal pain [Unknown]
  - Secretion discharge [Unknown]
  - Dyspnoea [Unknown]
